FAERS Safety Report 6902715-X (Version None)
Quarter: 2010Q3

REPORT INFORMATION
  Report Type: 
  Country: None (occurrence: None)
  Receive Date: 20100803
  Receipt Date: 20080731
  Transmission Date: 20110219
  Serious: No
  Sender: FDA-Public Use
  Company Number: US-PFIZER INC-2008064450

PATIENT
  Sex: Female
  Weight: 90.9 kg

DRUGS (2)
  1. LYRICA [Suspect]
     Indication: PAIN
     Dates: start: 20080731
  2. DRUG, UNSPECIFIED [Concomitant]

REACTIONS (1)
  - DIZZINESS [None]
